FAERS Safety Report 17117745 (Version 3)
Quarter: 2021Q3

REPORT INFORMATION
  Report Type: Spontaneous
  Country: GR (occurrence: GR)
  Receive Date: 20191205
  Receipt Date: 20210905
  Transmission Date: 20211014
  Serious: Yes (Other)
  Sender: FDA-Public Use
  Company Number: GR-JNJFOC-20191144402

PATIENT
  Sex: Male
  Weight: 198 kg

DRUGS (3)
  1. STELARA [Suspect]
     Active Substance: USTEKINUMAB
     Route: 058
     Dates: start: 201702
  2. STELARA [Suspect]
     Active Substance: USTEKINUMAB
     Indication: PSORIASIS
     Route: 058
     Dates: start: 201107, end: 201508
  3. METHOTREXATE. [Concomitant]
     Active Substance: METHOTREXATE
     Dosage: BETWEEN THE ADMINISTRATIONS FOR ABOUT A YEAR (FOR THE YEAR BEFORE?SURGERY), ABOUT 20MG PER WEEK

REACTIONS (2)
  - Depression [Unknown]
  - Body mass index increased [Unknown]
